FAERS Safety Report 11008617 (Version 1)
Quarter: 2015Q2

REPORT INFORMATION
  Report Type: Spontaneous
  Country: US (occurrence: None)
  Receive Date: 20150408
  Receipt Date: 20150408
  Transmission Date: 20150821
  Serious: Yes (Other)
  Sender: FDA-Public Use
  Company Number: RAP-0158-2014

PATIENT
  Age: 28 Year
  Sex: Female
  Weight: 49.81 kg

DRUGS (1)
  1. PROCYSBI DELAYED-RELEASE [Suspect]
     Active Substance: CYSTEAMINE BITARTRATE
     Indication: CYSTINOSIS
     Dosage: 1200 MG, 1 IN 12 HR
     Route: 048
     Dates: start: 201307

REACTIONS (6)
  - Fluid overload [None]
  - Dialysis [None]
  - Laboratory test abnormal [None]
  - Drug ineffective [None]
  - Transfusion [None]
  - Pain [None]
